FAERS Safety Report 19054599 (Version 2)
Quarter: 2022Q4

REPORT INFORMATION
  Report Type: Spontaneous
  Country: FR (occurrence: FR)
  Receive Date: 20210325
  Receipt Date: 20221022
  Transmission Date: 20230113
  Serious: Yes (Other)
  Sender: FDA-Public Use
  Company Number: None

PATIENT
  Age: 68 Year
  Sex: Female

DRUGS (1)
  1. CARBOPLATIN [Suspect]
     Active Substance: CARBOPLATIN
     Indication: Lung adenocarcinoma
     Dosage: 380 TO 410MG PER CURE
     Route: 041
     Dates: start: 20201103, end: 20210204

REACTIONS (1)
  - Hepatic cytolysis [Recovered/Resolved]

NARRATIVE: CASE EVENT DATE: 20201120
